FAERS Safety Report 18312659 (Version 1)
Quarter: 2020Q3

REPORT INFORMATION
  Report Type: Spontaneous
  Country: HR (occurrence: HR)
  Receive Date: 20200925
  Receipt Date: 20200925
  Transmission Date: 20201103
  Serious: Yes (Death, Other)
  Sender: FDA-Public Use
  Company Number: HR-AMGEN-HRVNI2020151357

PATIENT
  Age: 36 Year
  Sex: Male
  Weight: 78 kg

DRUGS (12)
  1. MEDROL [Concomitant]
     Active Substance: METHYLPREDNISOLONE
     Indication: HYPOGLYCAEMIA
     Dosage: 6 MILLIGRAM
     Route: 048
     Dates: start: 20170701
  2. VOTRIENT [Concomitant]
     Active Substance: PAZOPANIB HYDROCHLORIDE
     Dosage: UNK
  3. IFOSFAMIDE. [Concomitant]
     Active Substance: IFOSFAMIDE
     Dosage: UNK
  4. FRAGMIN [Concomitant]
     Active Substance: DALTEPARIN SODIUM
     Indication: THROMBOSIS
     Dosage: 0.4 MILLILITER, QD
     Route: 058
  5. TEMOZOLOMIDE. [Suspect]
     Active Substance: TEMOZOLOMIDE
     Indication: PRODUCT USED FOR UNKNOWN INDICATION
     Dosage: 200 MILLIGRAM, QD
     Route: 048
  6. LUPOCET [Concomitant]
     Active Substance: ACETAMINOPHEN
     Dosage: 500 MILLIGRAM, AS NECESSARY
     Route: 048
  7. DOXORUBICIN [Concomitant]
     Active Substance: DOXORUBICIN
     Dosage: UNK
  8. LASIX [Suspect]
     Active Substance: FUROSEMIDE
     Indication: OEDEMA
     Dosage: 40 MILLIGRAM
     Route: 065
  9. MESNA. [Concomitant]
     Active Substance: MESNA
     Dosage: UNK
  10. BEVACIZUMAB. [Suspect]
     Active Substance: BEVACIZUMAB
     Indication: PRODUCT USED FOR UNKNOWN INDICATION
     Dosage: 500 MILLIGRAM
     Route: 065
     Dates: start: 201807
  11. DACARBAZINE. [Concomitant]
     Active Substance: DACARBAZINE
     Dosage: UNK
  12. ENTRECTINIB [Suspect]
     Active Substance: ENTRECTINIB
     Indication: SARCOMA
     Dosage: 600 MILLIGRAM, QD
     Route: 048
     Dates: start: 20200217

REACTIONS (19)
  - Malignant connective tissue neoplasm [Fatal]
  - Disease progression [Fatal]
  - Nail discolouration [Unknown]
  - Hypoaesthesia teeth [Recovered/Resolved]
  - Paraesthesia [Recovered/Resolved]
  - Rash maculo-papular [Recovered/Resolved]
  - Dysgeusia [Not Recovered/Not Resolved]
  - Sensory disturbance [Recovered/Resolved]
  - Palpitations [Not Recovered/Not Resolved]
  - Pyrexia [Not Recovered/Not Resolved]
  - Atrial thrombosis [Not Recovered/Not Resolved]
  - Hypoaesthesia [Recovered/Resolved]
  - Oedema peripheral [Not Recovered/Not Resolved]
  - Constipation [Recovered/Resolved]
  - Paraneoplastic syndrome [Recovering/Resolving]
  - Taste disorder [Not Recovered/Not Resolved]
  - Soft tissue sarcoma [Fatal]
  - Dry mouth [Recovered/Resolved]
  - Burning sensation [Recovered/Resolved]

NARRATIVE: CASE EVENT DATE: 20200218
